FAERS Safety Report 13060109 (Version 1)
Quarter: 2016Q4

REPORT INFORMATION
  Report Type: Report from Study
  Country: AR (occurrence: AR)
  Receive Date: 20161223
  Receipt Date: 20161223
  Transmission Date: 20170207
  Serious: Yes (Life-Threatening, Other)
  Sender: FDA-Public Use
  Company Number: AR-BRISTOL-MYERS SQUIBB COMPANY-BMS-2016-108837

PATIENT
  Age: 41 Year
  Sex: Female

DRUGS (1)
  1. NIVOLUMAB [Suspect]
     Active Substance: NIVOLUMAB
     Indication: PRODUCT USED FOR UNKNOWN INDICATION
     Dosage: 1 DF=3 VIALS, Q2WK
     Route: 042
     Dates: start: 20160817

REACTIONS (2)
  - Malignant neoplasm progression [Unknown]
  - Surgery [Unknown]

NARRATIVE: CASE EVENT DATE: 20161119
